FAERS Safety Report 7913736-2 (Version None)
Quarter: 2011Q4

REPORT INFORMATION
  Report Type: 
  Country: None (occurrence: None)
  Receive Date: 20111110
  Receipt Date: 20111103
  Transmission Date: 20120403
  Serious: Yes (Hospitalization, Other)
  Sender: FDA-Public Use
  Company Number: 2010SP004583

PATIENT
  Age: 46 Year
  Sex: Female

DRUGS (3)
  1. NUVARING [Suspect]
     Indication: MENORRHAGIA
     Dates: start: 20041111, end: 20090201
  2. NUVARING [Suspect]
     Indication: MENSTRUAL DISORDER
     Dates: start: 20041111, end: 20090201
  3. NUVARING [Suspect]
     Indication: CONTRACEPTION
     Dates: start: 20041111, end: 20090201

REACTIONS (15)
  - TRANSIENT ISCHAEMIC ATTACK [None]
  - MIGRAINE [None]
  - ATRIAL SEPTAL DEFECT [None]
  - IRRITABLE BOWEL SYNDROME [None]
  - THYROID DISORDER [None]
  - GASTRITIS [None]
  - TRICUSPID VALVE INCOMPETENCE [None]
  - CARDIAC ANEURYSM [None]
  - SENSATION OF HEAVINESS [None]
  - CONFUSIONAL STATE [None]
  - DYSPEPSIA [None]
  - MITRAL VALVE INCOMPETENCE [None]
  - MELANOCYTIC NAEVUS [None]
  - FEELING ABNORMAL [None]
  - MENORRHAGIA [None]
